FAERS Safety Report 9150145 (Version 2)
Quarter: 2013Q4

REPORT INFORMATION
  Report Type: Spontaneous
  Country: ES (occurrence: ES)
  Receive Date: 20130308
  Receipt Date: 20131223
  Transmission Date: 20140711
  Serious: Yes (Other)
  Sender: FDA-Public Use
  Company Number: ES-MERCK-1303ESP000190

PATIENT
  Age: 45 Year
  Sex: Male

DRUGS (1)
  1. INTRONA [Suspect]
     Dosage: 20 MILLION U/M2, QD
     Route: 065
     Dates: start: 20100111, end: 2010

REACTIONS (1)
  - Cranial nerve disorder [Recovered/Resolved]
